FAERS Safety Report 23463626 (Version 2)
Quarter: 2024Q1

REPORT INFORMATION
  Report Type: Report from Study
  Country: CA (occurrence: CA)
  Receive Date: 20240131
  Receipt Date: 20240308
  Transmission Date: 20240410
  Serious: Yes (Hospitalization)
  Sender: FDA-Public Use
  Company Number: CA-ABBVIE-5608527

PATIENT
  Age: 75 Year
  Sex: Female

DRUGS (2)
  1. RINVOQ [Suspect]
     Active Substance: UPADACITINIB
     Indication: Rheumatoid arthritis
     Dosage: FORM STRENGTH: 15 MILLIGRAM
     Route: 048
     Dates: start: 20230505
  2. ADVIL [Concomitant]
     Active Substance: IBUPROFEN
     Indication: Product used for unknown indication

REACTIONS (12)
  - Back disorder [Unknown]
  - Unevaluable event [Recovering/Resolving]
  - Pain [Unknown]
  - Pain [Unknown]
  - Mobility decreased [Unknown]
  - Back pain [Unknown]
  - Inflammation [Recovered/Resolved]
  - Gait inability [Unknown]
  - Pruritus [Unknown]
  - Skin discolouration [Not Recovered/Not Resolved]
  - Haematoma muscle [Unknown]
  - Fatigue [Unknown]

NARRATIVE: CASE EVENT DATE: 20240101
